FAERS Safety Report 7622716-6 (Version None)
Quarter: 2011Q3

REPORT INFORMATION
  Report Type: 
  Country: None (occurrence: None)
  Receive Date: 20110719
  Receipt Date: 20110719
  Transmission Date: 20111222
  Serious: Yes (Life-Threatening, Hospitalization, Other)
  Sender: FDA-Public Use
  Company Number: None

PATIENT
  Age: 57 Year
  Sex: Male
  Weight: 86.1834 kg

DRUGS (1)
  1. ZOCOR [Suspect]
     Indication: HYPERCHOLESTEROLAEMIA
     Dosage: 80 MG ONCE A DAY PO
     Route: 048
     Dates: start: 19980923, end: 20110528

REACTIONS (34)
  - MOOD SWINGS [None]
  - PERSONALITY CHANGE [None]
  - OSTEOPOROSIS [None]
  - AMNESIA [None]
  - SOMNOLENCE [None]
  - HYPOAESTHESIA [None]
  - MUSCULOSKELETAL PAIN [None]
  - HEADACHE [None]
  - DIARRHOEA [None]
  - SEXUAL DYSFUNCTION [None]
  - CATARACT [None]
  - NAUSEA [None]
  - ASTHENIA [None]
  - FATIGUE [None]
  - NECK PAIN [None]
  - PNEUMONIA VIRAL [None]
  - TREMOR [None]
  - SKIN LESION [None]
  - CONSTIPATION [None]
  - INTERSTITIAL LUNG DISEASE [None]
  - DRUG INTERACTION [None]
  - PARAESTHESIA [None]
  - DIABETES MELLITUS [None]
  - POLLAKIURIA [None]
  - OEDEMA PERIPHERAL [None]
  - RENAL DISORDER [None]
  - AGGRESSION [None]
  - ABNORMAL DREAMS [None]
  - INSOMNIA [None]
  - MYALGIA [None]
  - COGNITIVE DISORDER [None]
  - CONFUSIONAL STATE [None]
  - MUSCLE SPASMS [None]
  - BLOOD TESTOSTERONE DECREASED [None]
